FAERS Safety Report 21792349 (Version 2)
Quarter: 2022Q4

REPORT INFORMATION
  Report Type: Spontaneous
  Country: FR (occurrence: FR)
  Receive Date: 20221229
  Receipt Date: 20221230
  Transmission Date: 20230113
  Serious: Yes (Other)
  Sender: FDA-Public Use
  Company Number: FR-ABBVIE-4252370

PATIENT
  Sex: Female

DRUGS (1)
  1. VALPROATE SODIUM [Suspect]
     Active Substance: VALPROATE SODIUM
     Indication: Epilepsy
     Route: 065

REACTIONS (11)
  - Developmental coordination disorder [Unknown]
  - Exposure via grandmother [Unknown]
  - Speech disorder developmental [Unknown]
  - Behaviour disorder [Not Recovered/Not Resolved]
  - Kidney malformation [Not Recovered/Not Resolved]
  - Liver disorder [Not Recovered/Not Resolved]
  - Learning disorder [Unknown]
  - Cognitive disorder [Unknown]
  - Learning disability [Unknown]
  - Cardiac disorder [Not Recovered/Not Resolved]
  - Gait disturbance [Unknown]
